FAERS Safety Report 4346025-6 (Version None)
Quarter: 2004Q2

REPORT INFORMATION
  Report Type: 
  Country: None (occurrence: None)
  Receive Date: 20040423
  Receipt Date: 20040423
  Transmission Date: 20050107
  Serious: Yes (Other)
  Sender: FDA-Public Use
  Company Number: None

PATIENT
  Age: 53 Year
  Sex: Female
  Weight: 72.5755 kg

DRUGS (1)
  1. METHADONE - DOSE?- 130 MG [Suspect]
     Indication: DRUG DEPENDENCE
     Dosage: 130 MG DAILY ORAL
     Route: 048
     Dates: start: 20031111, end: 20040422

REACTIONS (2)
  - DRUG SCREEN POSITIVE [None]
  - FEELING ABNORMAL [None]
